FAERS Safety Report 15509682 (Version 2)
Quarter: 2018Q4

REPORT INFORMATION
  Report Type: Report from Study
  Country: US (occurrence: US)
  Receive Date: 20181016
  Receipt Date: 20181108
  Transmission Date: 20190205
  Serious: Yes (Hospitalization)
  Sender: FDA-Public Use
  Company Number: US-BAUSCH-BL-2018-028037

PATIENT
  Sex: Male
  Weight: 136.2 kg

DRUGS (4)
  1. SILIQ [Suspect]
     Active Substance: BRODALUMAB
     Dosage: SCHEDULED FOR 1 INJECTION AT WEEKS 0, 1, AND 2  FOLLOWED BY 1 INJECTION EVERY 2 WEEKS
     Route: 058
     Dates: start: 2018, end: 2018
  2. SILIQ [Suspect]
     Active Substance: BRODALUMAB
     Route: 058
     Dates: start: 20180928
  3. SILIQ [Suspect]
     Active Substance: BRODALUMAB
     Dosage: GAVE HIMSELF 2 INJECTIONS
     Route: 058
     Dates: start: 2018
  4. SILIQ [Suspect]
     Active Substance: BRODALUMAB
     Indication: PSORIASIS
     Dosage: SCHEDULED FOR 1 INJECTION AT WEEKS 0, 1, AND 2  FOLLOWED BY 1 INJECTION EVERY 2 WEEKS
     Route: 058
     Dates: start: 201808, end: 2018

REACTIONS (6)
  - Therapy cessation [Recovered/Resolved]
  - Product dose omission [Recovered/Resolved]
  - Inappropriate schedule of product administration [Recovered/Resolved]
  - Staphylococcal infection [Recovered/Resolved]
  - Product availability issue [Recovered/Resolved]
  - Incorrect dose administered [Recovered/Resolved]

NARRATIVE: CASE EVENT DATE: 2018
